FAERS Safety Report 9923245 (Version 1)
Quarter: 2014Q1

REPORT INFORMATION
  Report Type: Spontaneous
  Country: US (occurrence: US)
  Receive Date: 20140225
  Receipt Date: 20140225
  Transmission Date: 20141002
  Serious: No
  Sender: FDA-Public Use
  Company Number: US-AMGEN-USASP2013072605

PATIENT
  Age: 48 Year
  Sex: Female
  Weight: 49.89 kg

DRUGS (11)
  1. ENBREL [Suspect]
     Indication: PRODUCT USED FOR UNKNOWN INDICATION
     Dosage: 50 MG, QWK
     Route: 058
  2. PREDNISONE [Concomitant]
     Dosage: 1 MG, UNK
  3. METHOTREXATE [Concomitant]
     Dosage: 2.5 MG, UNK
  4. POTASSIUM [Concomitant]
     Dosage: 75 MG, UNK
  5. MAGNESIUM [Concomitant]
     Dosage: 300 MG, UNK
  6. VITAMIN D                          /00107901/ [Concomitant]
     Dosage: 1000 UNIT, UNK
  7. VITAMIN C                          /00008001/ [Concomitant]
     Dosage: 500 MG, UNK
  8. ASPIRIN BUFFERED [Concomitant]
     Dosage: 325 MG, UNK
  9. FOLIC ACID [Concomitant]
     Dosage: UNK
  10. VITAMIN B12                        /00056201/ [Concomitant]
     Dosage: 1000, UNK
  11. VITAMIN E                          /00110501/ [Concomitant]
     Dosage: 1000 UNIT, UNK

REACTIONS (2)
  - Injection site nodule [Unknown]
  - Injection site pain [Unknown]
